FAERS Safety Report 23987065 (Version 2)
Quarter: 2024Q3

REPORT INFORMATION
  Report Type: Spontaneous
  Country: US (occurrence: US)
  Receive Date: 20240618
  Receipt Date: 20240703
  Transmission Date: 20241016
  Serious: No
  Sender: Unknown Manufacturer
  Company Number: US-862174955-ML2024-03379

PATIENT
  Age: 83 Year
  Sex: Female

DRUGS (1)
  1. DORZOLAMIDE\TIMOLOL [Suspect]
     Active Substance: DORZOLAMIDE\TIMOLOL
     Indication: Glaucoma
     Dosage: TWICE A DAY IN THE MORNING AND NIGHT.
     Route: 047

REACTIONS (2)
  - Superficial injury of eye [Recovered/Resolved]
  - Product container issue [Unknown]
